FAERS Safety Report 10569322 (Version 1)
Quarter: 2014Q4

REPORT INFORMATION
  Report Type: Spontaneous
  Country: IL (occurrence: IL)
  Receive Date: 20141106
  Receipt Date: 20141106
  Transmission Date: 20150529
  Serious: Yes (Hospitalization)
  Sender: FDA-Public Use
  Company Number: IL-ASTRAZENECA-2014SE82663

PATIENT
  Age: 40 Year
  Sex: Male

DRUGS (1)
  1. NEXIUM [Suspect]
     Active Substance: ESOMEPRAZOLE MAGNESIUM
     Indication: GASTROOESOPHAGEAL REFLUX DISEASE
     Dosage: DAILY
     Route: 048

REACTIONS (3)
  - Diarrhoea [Unknown]
  - Hypersensitivity [Unknown]
  - Asthenia [Unknown]
